FAERS Safety Report 23733265 (Version 1)
Quarter: 2024Q2

REPORT INFORMATION
  Report Type: Spontaneous
  Country: CA (occurrence: CA)
  Receive Date: 20240411
  Receipt Date: 20240411
  Transmission Date: 20240716
  Serious: Yes (Other)
  Sender: FDA-Public Use
  Company Number: CA-PFIZER INC-202400081993

PATIENT
  Age: 41 Year
  Sex: Female
  Weight: 74.83 kg

DRUGS (3)
  1. ALESSE 28 [Suspect]
     Active Substance: ETHINYL ESTRADIOL\LEVONORGESTREL
     Indication: Contraception
     Dosage: 1 DF, 1X/DAY
     Route: 048
  2. RABEPRAZOLE SODIUM [Concomitant]
     Active Substance: RABEPRAZOLE SODIUM
  3. SYNTHROID [Concomitant]
     Active Substance: LEVOTHYROXINE SODIUM

REACTIONS (5)
  - Drug ineffective [Recovering/Resolving]
  - Exposure during pregnancy [Recovering/Resolving]
  - Intermenstrual bleeding [Recovering/Resolving]
  - Polymenorrhoea [Recovering/Resolving]
  - Suspected product quality issue [Recovering/Resolving]
